FAERS Safety Report 8259454-5 (Version None)
Quarter: 2012Q2

REPORT INFORMATION
  Report Type: 
  Country: None (occurrence: None)
  Receive Date: 20120404
  Receipt Date: 20120327
  Transmission Date: 20120825
  Serious: Yes (Hospitalization, Other)
  Sender: FDA-Public Use
  Company Number: US-ACTELION-A-NJ2010-34761

PATIENT

DRUGS (3)
  1. TRACLEER [Suspect]
     Indication: PULMONARY ARTERIAL HYPERTENSION
     Dosage: UNK
     Route: 048
     Dates: start: 20030723
  2. CALCIUM CHANNEL BLOCKERS [Concomitant]
  3. COUMADIN [Concomitant]

REACTIONS (11)
  - SCLERODERMA [None]
  - VOMITING [None]
  - VISION BLURRED [None]
  - PRESYNCOPE [None]
  - DIVERTICULITIS [None]
  - CONCOMITANT DISEASE AGGRAVATED [None]
  - TRANSFUSION [None]
  - INTESTINAL OBSTRUCTION [None]
  - SYSTEMIC LUPUS ERYTHEMATOSUS [None]
  - RECTAL HAEMORRHAGE [None]
  - ABDOMINAL DISCOMFORT [None]
